FAERS Safety Report 4299526-3 (Version None)
Quarter: 2004Q1

REPORT INFORMATION
  Report Type: 
  Country: None (occurrence: None)
  Receive Date: 20040217
  Receipt Date: 20040202
  Transmission Date: 20041129
  Serious: Yes (Death, Hospitalization, Other)
  Sender: FDA-Public Use
  Company Number: 2003124604

PATIENT
  Age: 37 Year
  Sex: Female

DRUGS (7)
  1. GEODON [Suspect]
     Indication: ILL-DEFINED DISORDER
     Dosage: 160 MG (BID), ORAL
     Route: 048
  2. GATIFLOXACIN (GATIFLOXACIN) [Suspect]
     Indication: PNEUMONIA
     Dosage: 400 MG (QD), ORAL
     Route: 048
  3. OLANZAPINE [Concomitant]
  4. LITHIUM CARBONATE [Concomitant]
  5. AZITHROMYCIN [Concomitant]
  6. CEFOTAXIME SODIUM [Concomitant]
  7. ALL OTHER THERAPEUTIC PRODUCTS [Concomitant]

REACTIONS (9)
  - BLOOD THYROID STIMULATING HORMONE INCREASED [None]
  - CORONARY ARTERY STENOSIS [None]
  - DRUG INTERACTION [None]
  - ELECTROCARDIOGRAM QT PROLONGED [None]
  - HYPOTHYROIDISM [None]
  - HYPOXIA [None]
  - MENTAL STATUS CHANGES [None]
  - MYOCARDIAL INFARCTION [None]
  - PNEUMONIA [None]
